FAERS Safety Report 5956377-9 (Version None)
Quarter: 2008Q4

REPORT INFORMATION
  Report Type: 
  Country: None (occurrence: None)
  Receive Date: 20081112
  Receipt Date: 20081103
  Transmission Date: 20090506
  Serious: Yes (Other)
  Sender: FDA-Public Use
  Company Number: 036214

PATIENT
  Sex: Female

DRUGS (1)
  1. KETOCONAZOLE [Suspect]

REACTIONS (1)
  - ANAPHYLACTIC REACTION [None]
